FAERS Safety Report 20181230 (Version 1)
Quarter: 2021Q4

REPORT INFORMATION
  Report Type: Spontaneous
  Country: ZA (occurrence: ZA)
  Receive Date: 20211214
  Receipt Date: 20211214
  Transmission Date: 20220303
  Serious: Yes (Other)
  Sender: FDA-Public Use
  Company Number: ZA-STRIDES ARCOLAB LIMITED-2021SP030999

PATIENT
  Age: 58 Year
  Sex: Male

DRUGS (8)
  1. PREDNISOLONE [Suspect]
     Active Substance: PREDNISOLONE
     Indication: Diffuse large B-cell lymphoma
     Dosage: 100 MILLIGRAM PER DAY, 7 CYCLES, ON DAYS 1-5; AS A PART OF RCHOP REGIMEN
     Route: 048
     Dates: start: 201904
  2. PREDNISOLONE [Suspect]
     Active Substance: PREDNISOLONE
     Dosage: 100 MILLIGRAM, UNK, ON DAYS 1, 3 AND 5; AS A PART OF BOP REGIMEN
     Route: 048
  3. DOXORUBICIN [Suspect]
     Active Substance: DOXORUBICIN
     Indication: Diffuse large B-cell lymphoma
     Dosage: 50 MILLIGRAM/SQ. METER, 7 CYCLES, ON DAY 1 AS A PART OF RCHOP REGIMEN
     Route: 042
     Dates: start: 201904
  4. RITUXIMAB [Suspect]
     Active Substance: RITUXIMAB
     Indication: Diffuse large B-cell lymphoma
     Dosage: 375 MILLIGRAM/SQ. METER, 7 CYCLES, ON DAY 1 AS A PART OF R-CHOP REGIMEN
     Route: 042
     Dates: start: 201904
  5. CYCLOPHOSPHAMIDE [Suspect]
     Active Substance: CYCLOPHOSPHAMIDE
     Indication: Diffuse large B-cell lymphoma
     Dosage: 750 MILLIGRAM/SQ. METER, 7 CYCLES, ON DAY 1 AS A PART OF R-CHOP REGIMEN
     Route: 042
     Dates: start: 201904
  6. VINCRISTINE [Suspect]
     Active Substance: VINCRISTINE
     Indication: Diffuse large B-cell lymphoma
     Dosage: 1.4 MILLIGRAM/SQ. METER, 7 CYCLES, ON DAY 1 AS A PART OF R-CHOP REGIMEN
     Route: 042
     Dates: start: 201904
  7. VINCRISTINE [Suspect]
     Active Substance: VINCRISTINE
     Dosage: 1.4 MILLIGRAM/SQ. METER, UNK, ON DAY 1 AS A PART OF BOP REGIMEN
     Route: 042
  8. BLEOMYCIN [Suspect]
     Active Substance: BLEOMYCIN SULFATE
     Indication: Diffuse large B-cell lymphoma
     Dosage: 10 MILLIGRAM/SQ. METER, ON DAY 1 AS A PART OF BOP REGIMEN
     Route: 042

REACTIONS (1)
  - Myelosuppression [Unknown]
